FAERS Safety Report 8230679-8 (Version None)
Quarter: 2012Q1

REPORT INFORMATION
  Report Type: 
  Country: None (occurrence: None)
  Receive Date: 20120323
  Receipt Date: 20120320
  Transmission Date: 20120608
  Serious: Yes (Death, Hospitalization)
  Sender: FDA-Public Use
  Company Number: FR-SANOFI-AVENTIS-2012SA019305

PATIENT
  Age: 60 Year
  Sex: Male

DRUGS (2)
  1. FACTOR VIIA [Suspect]
     Dosage: INFUSION WAS GIVEN
     Route: 065
  2. ATENOLOL AND CHLORTHALIDONE [Suspect]
     Indication: ARTERIAL STENOSIS
     Route: 065

REACTIONS (5)
  - DISSEMINATED INTRAVASCULAR COAGULATION [None]
  - MULTI-ORGAN FAILURE [None]
  - HAEMORRHAGE [None]
  - AORTIC THROMBOSIS [None]
  - LEFT VENTRICULAR DYSFUNCTION [None]
